FAERS Safety Report 10285541 (Version 2)
Quarter: 2014Q3

REPORT INFORMATION
  Report Type: Report from Study
  Country: US (occurrence: US)
  Receive Date: 20140709
  Receipt Date: 20140723
  Transmission Date: 20150326
  Serious: Yes (Hospitalization, Other)
  Sender: FDA-Public Use
  Company Number: US-ABBVIE-14P-163-1254461-00

PATIENT
  Age: 60 Year
  Sex: Male
  Weight: 101.24 kg

DRUGS (4)
  1. HUMIRA [Suspect]
     Active Substance: ADALIMUMAB
     Indication: PSORIASIS
     Dates: start: 201301, end: 201305
  2. HUMIRA [Suspect]
     Active Substance: ADALIMUMAB
     Dates: start: 201403
  3. METHOTREXATE [Suspect]
     Active Substance: METHOTREXATE
     Indication: PRODUCT USED FOR UNKNOWN INDICATION
  4. INSULIN [Concomitant]
     Active Substance: INSULIN NOS
     Indication: PRODUCT USED FOR UNKNOWN INDICATION

REACTIONS (7)
  - Infected bites [Recovered/Resolved]
  - Pyrexia [Recovered/Resolved]
  - Hepatic cirrhosis [Not Recovered/Not Resolved]
  - Drug ineffective [Not Recovered/Not Resolved]
  - Psoriasis [Not Recovered/Not Resolved]
  - Non-alcoholic steatohepatitis [Unknown]
  - Arthropod bite [Unknown]

NARRATIVE: CASE EVENT DATE: 201304
